FAERS Safety Report 12131761 (Version 1)
Quarter: 2016Q1

REPORT INFORMATION
  Report Type: Spontaneous
  Country: US (occurrence: US)
  Receive Date: 20160301
  Receipt Date: 20160301
  Transmission Date: 20160526
  Serious: No
  Sender: FDA-Public Use
  Company Number: US-ACTAVIS-2015-12138

PATIENT
  Age: 32 Year
  Sex: Female

DRUGS (1)
  1. DOXYCYCLINE HYCLATE (ACTAVIS LABORATORIES FL) [Suspect]
     Active Substance: DOXYCYCLINE HYCLATE
     Indication: LYME DISEASE
     Dosage: 100 MG, SINGLE
     Route: 048
     Dates: start: 20150528, end: 20150528

REACTIONS (5)
  - Nausea [Recovered/Resolved]
  - Migraine [Recovered/Resolved]
  - Abdominal discomfort [Recovered/Resolved]
  - Back pain [Recovered/Resolved]
  - Pain [Recovered/Resolved]

NARRATIVE: CASE EVENT DATE: 20150528
